FAERS Safety Report 8525506-5 (Version None)
Quarter: 2012Q3

REPORT INFORMATION
  Report Type: 
  Country: None (occurrence: None)
  Receive Date: 20120720
  Receipt Date: 20120713
  Transmission Date: 20120928
  Serious: Yes (Other)
  Sender: FDA-Public Use
  Company Number: US-JNJFOC-20120306127

PATIENT
  Sex: Female
  Weight: 77.11 kg

DRUGS (12)
  1. CELEBREX [Concomitant]
     Indication: RHEUMATOID ARTHRITIS
     Route: 048
     Dates: start: 20100101
  2. LORTAB [Concomitant]
     Indication: RHEUMATOID ARTHRITIS
     Route: 065
  3. AZELASTINE HCL [Concomitant]
     Indication: ASTHMA
     Route: 045
     Dates: start: 20120101
  4. PLAVIX [Concomitant]
     Indication: CEREBROVASCULAR ACCIDENT
     Route: 048
     Dates: start: 20030101
  5. DEXILANT [Concomitant]
     Indication: GASTROOESOPHAGEAL REFLUX DISEASE
     Route: 048
     Dates: start: 20090101
  6. AMBIEN [Concomitant]
     Indication: FIBROMYALGIA
     Route: 065
  7. REMICADE [Suspect]
     Indication: RHEUMATOID ARTHRITIS
     Route: 042
     Dates: start: 20111101
  8. ADVAIR DISKUS 100/50 [Concomitant]
     Indication: ASTHMA
     Route: 055
     Dates: start: 20100101
  9. VENTOLIN [Concomitant]
     Indication: ASTHMA
     Route: 055
     Dates: start: 20120101
  10. DOXEPIN [Concomitant]
     Indication: SLEEP DISORDER
     Route: 048
     Dates: start: 20110101
  11. METHOTREXATE [Concomitant]
     Indication: RHEUMATOID ARTHRITIS
     Route: 065
  12. IMITREX [Concomitant]
     Indication: MIGRAINE
     Route: 048
     Dates: start: 20000101

REACTIONS (3)
  - FIBROMYALGIA [None]
  - HYPOKINESIA [None]
  - MALAISE [None]
